FAERS Safety Report 9515746 (Version 1)
Quarter: 2013Q3

REPORT INFORMATION
  Report Type: Spontaneous
  Country: SE (occurrence: SE)
  Receive Date: 20130911
  Receipt Date: 20130911
  Transmission Date: 20140515
  Serious: Yes (Death)
  Sender: FDA-Public Use
  Company Number: SE-PFIZER INC-2013257985

PATIENT
  Sex: Female

DRUGS (1)
  1. INLYTA [Suspect]
     Dosage: UNK

REACTIONS (1)
  - Death [Fatal]
